FAERS Safety Report 25707375 (Version 1)
Quarter: 2025Q3

REPORT INFORMATION
  Report Type: Spontaneous
  Country: US (occurrence: US)
  Receive Date: 20250820
  Receipt Date: 20250820
  Transmission Date: 20251021
  Serious: No
  Sender: IMPEL NEUROPHARMA
  Company Number: US-IMPEL-2025-US-026664

PATIENT
  Age: 69 Year
  Sex: Female

DRUGS (3)
  1. ZOLMITRIPTAN [Concomitant]
     Active Substance: ZOLMITRIPTAN
  2. ZOLMITRIPTAN [Concomitant]
     Active Substance: ZOLMITRIPTAN
  3. TRUDHESA [Suspect]
     Active Substance: DIHYDROERGOTAMINE MESYLATE
     Indication: Product used for unknown indication
     Route: 045
     Dates: start: 202404

REACTIONS (2)
  - Nasal congestion [Unknown]
  - Dyspnoea [Unknown]

NARRATIVE: CASE EVENT DATE: 20240401
